FAERS Safety Report 12580767 (Version 1)
Quarter: 2016Q3

REPORT INFORMATION
  Report Type: Spontaneous
  Country: US (occurrence: US)
  Receive Date: 20160721
  Receipt Date: 20160721
  Transmission Date: 20161109
  Serious: No
  Sender: FDA-Public Use
  Company Number: US-PFIZER INC-2016338862

PATIENT
  Sex: Female

DRUGS (11)
  1. VISTARIL [Suspect]
     Active Substance: HYDROXYZINE PAMOATE
     Dosage: UNK
  2. VANCOMYCIN HCL [Suspect]
     Active Substance: VANCOMYCIN HYDROCHLORIDE
     Dosage: UNK
  3. ZOSYN [Suspect]
     Active Substance: PIPERACILLIN SODIUM\TAZOBACTAM SODIUM
     Dosage: UNK
  4. METROGEL [Suspect]
     Active Substance: METRONIDAZOLE
     Dosage: UNK
  5. NITROGLYCERIN. [Suspect]
     Active Substance: NITROGLYCERIN
     Dosage: UNK
  6. TRAMADOL. [Suspect]
     Active Substance: TRAMADOL
     Dosage: UNK
  7. CYMBALTA [Suspect]
     Active Substance: DULOXETINE HYDROCHLORIDE
     Dosage: UNK
  8. LISINOPRIL. [Suspect]
     Active Substance: LISINOPRIL
     Dosage: UNK
  9. PROZAC [Suspect]
     Active Substance: FLUOXETINE HYDROCHLORIDE
     Dosage: UNK
  10. AMIODARONE HCL [Suspect]
     Active Substance: AMIODARONE HYDROCHLORIDE
     Dosage: UNK
  11. RISPERIDONE. [Suspect]
     Active Substance: RISPERIDONE
     Dosage: UNK

REACTIONS (1)
  - Drug hypersensitivity [Unknown]
